FAERS Safety Report 14861207 (Version 1)
Quarter: 2018Q2

REPORT INFORMATION
  Report Type: Spontaneous
  Country: US (occurrence: US)
  Receive Date: 20180423
  Receipt Date: 20180423
  Transmission Date: 20180711
  Serious: Yes (Other)
  Sender: FDA-Public Use
  Company Number: None

PATIENT
  Age: 13 Year
  Sex: Female
  Weight: 81.28 kg

DRUGS (1)
  1. GUANFACINE ER 4MG TABLET [Suspect]
     Active Substance: GUANFACINE
     Indication: ATTENTION DEFICIT/HYPERACTIVITY DISORDER
     Route: 048
     Dates: start: 20180316, end: 20180420

REACTIONS (2)
  - Fatigue [None]
  - Sedation [None]

NARRATIVE: CASE EVENT DATE: 20180420
